FAERS Safety Report 7308835-2 (Version None)
Quarter: 2011Q1

REPORT INFORMATION
  Report Type: 
  Country: None (occurrence: None)
  Receive Date: 20110223
  Receipt Date: 20110218
  Transmission Date: 20110831
  Serious: Yes (Hospitalization)
  Sender: FDA-Public Use
  Company Number: JP-ABBOTT-11P-087-0703186-00

PATIENT
  Age: 72 Year
  Sex: Female

DRUGS (4)
  1. CHINESE HERBAL MEDICINE [Concomitant]
     Indication: PRODUCT USED FOR UNKNOWN INDICATION
  2. CLARITH TABLETS [Suspect]
     Indication: PRODUCT USED FOR UNKNOWN INDICATION
     Dosage: 200MG (200MG, SID)
     Route: 048
     Dates: start: 20101210, end: 20110104
  3. CLARITH TABLETS [Suspect]
     Dosage: 400MG (200MG, BID)
     Route: 048
     Dates: start: 20110105, end: 20110201
  4. CHINESE HERBAL MEDICINE [Concomitant]

REACTIONS (2)
  - LYMPHOCYTE STIMULATION TEST POSITIVE [None]
  - LUNG DISORDER [None]
